FAERS Safety Report 5085910-7 (Version None)
Quarter: 2006Q3

REPORT INFORMATION
  Report Type: 
  Country: None (occurrence: None)
  Receive Date: 20060817
  Receipt Date: 20060807
  Transmission Date: 20061208
  Serious: Yes (Life-Threatening)
  Sender: FDA-Public Use
  Company Number: 2006096704

PATIENT
  Sex: Female

DRUGS (8)
  1. LITHIUM (LITHIUM) [Suspect]
     Indication: DEPRESSION
     Dosage: (200 MG)
     Dates: start: 20060526, end: 20060528
  2. SERTRALINE [Suspect]
     Indication: DEPRESSION
     Dosage: (150 MG)
     Dates: start: 20060515, end: 20060528
  3. MIRTAZAPINE [Suspect]
     Indication: DEPRESSION
     Dosage: (45 MG)
     Dates: start: 20060515, end: 20060528
  4. FELODIPINE [Concomitant]
  5. FUROSEMIDE [Concomitant]
  6. LOSARTAN POTASSIUM [Concomitant]
  7. MELOXICAM (MELOXICAM) [Concomitant]
  8. NEFOPAM (NEFOPAM) [Concomitant]

REACTIONS (2)
  - PARTIAL SEIZURES [None]
  - SEROTONIN SYNDROME [None]
